FAERS Safety Report 8633754 (Version 3)
Quarter: 2013Q1

REPORT INFORMATION
  Report Type: Report from Study
  Country: US (occurrence: US)
  Receive Date: 20120625
  Receipt Date: 20130208
  Transmission Date: 20140127
  Serious: Yes (Death, Hospitalization, Other)
  Sender: FDA-Public Use
  Company Number: US-ABBOTT-12P-163-0947161-00

PATIENT
  Age: 63 None
  Sex: Female
  Weight: 79 kg

DRUGS (14)
  1. HUMIRA 40 MG/0.8 ML PEN [Suspect]
     Indication: CROHN^S DISEASE
     Dates: start: 2008, end: 201201
  2. CENTRUM SILVER ULTA WOMAN^S [Concomitant]
     Indication: PRODUCT USED FOR UNKNOWN INDICATION
  3. OSCAL 500 PLUS D [Concomitant]
     Indication: PRODUCT USED FOR UNKNOWN INDICATION
     Dosage: BID
  4. LEVOTHYROXINE [Concomitant]
     Indication: PRODUCT USED FOR UNKNOWN INDICATION
     Dosage: EVERY AM
  5. PRISTIQ [Concomitant]
     Indication: PRODUCT USED FOR UNKNOWN INDICATION
     Dosage: DAILY
  6. CLONAZEPAM [Concomitant]
     Indication: PRODUCT USED FOR UNKNOWN INDICATION
  7. AZATHIOPRINE [Concomitant]
     Indication: CROHN^S DISEASE
     Dosage: DAILY
  8. PENTASA [Concomitant]
     Indication: PRODUCT USED FOR UNKNOWN INDICATION
     Dosage: 4 CAPS TWICE/DAY
  9. CANASA [Concomitant]
     Indication: PRODUCT USED FOR UNKNOWN INDICATION
     Dosage: SUPPOSITORIES
  10. METOPROLOL SUCCINATE [Concomitant]
     Indication: PRODUCT USED FOR UNKNOWN INDICATION
     Dosage: 1/2 TAB DAILY
  11. FENTANYL [Concomitant]
     Indication: PRODUCT USED FOR UNKNOWN INDICATION
     Dosage: 1 PATCH EVERY 72 HOURS
  12. UNKNOWN MEDICATIONS [Concomitant]
     Dates: end: 20120621
  13. ER SUCCINATE [Concomitant]
     Indication: PRODUCT USED FOR UNKNOWN INDICATION
  14. METRONIDAZOLE [Concomitant]
     Indication: PRODUCT USED FOR UNKNOWN INDICATION

REACTIONS (22)
  - Cardio-respiratory arrest [Fatal]
  - Crohn^s disease [Fatal]
  - Cardiac disorder [Fatal]
  - Haemorrhage [Recovered/Resolved]
  - Cholelithiasis [Recovered/Resolved]
  - Cardiac arrest [Recovered/Resolved]
  - Incision site infection [Recovered/Resolved]
  - Wound infection [Recovered/Resolved]
  - Vomiting [Recovered/Resolved]
  - Bowel movement irregularity [Recovered/Resolved]
  - Rectal stenosis [Recovered/Resolved]
  - Abdominal hernia [Recovered/Resolved]
  - Fistula [Recovered/Resolved]
  - Rash macular [Not Recovered/Not Resolved]
  - Abdominal pain [Unknown]
  - Arrhythmia [Fatal]
  - Diarrhoea [Unknown]
  - Faecal incontinence [Unknown]
  - Clostridium difficile colitis [Unknown]
  - Fatigue [Unknown]
  - Decreased appetite [Unknown]
  - Gastrointestinal stoma complication [Unknown]
